FAERS Safety Report 19469773 (Version 1)
Quarter: 2021Q2

REPORT INFORMATION
  Report Type: Spontaneous
  Country: CN (occurrence: CN)
  Receive Date: 20210629
  Receipt Date: 20210629
  Transmission Date: 20210717
  Serious: Yes (Other)
  Sender: FDA-Public Use
  Company Number: CN-JIANGSU HENGRUI MEDICINE CO., LTD.-2113238

PATIENT
  Age: 66 Year
  Sex: Female
  Weight: 47 kg

DRUGS (3)
  1. CEFOXITIN SODIUM [Suspect]
     Active Substance: CEFOXITIN SODIUM
     Route: 041
     Dates: start: 20210602, end: 20210602
  2. CISATRACURIUM BESYLATE INJECTION USP, 10 MG/5 ML (2 MG/ML) AND 200 MG/ [Suspect]
     Active Substance: CISATRACURIUM BESYLATE
     Indication: MUSCLE RELAXANT THERAPY
     Route: 041
     Dates: start: 20210602, end: 20210602
  3. FLURBIPROFEN AXETIL [Suspect]
     Active Substance: FLURBIPROFEN AXETIL
     Route: 041
     Dates: start: 20210602, end: 20210602

REACTIONS (1)
  - Dermatitis allergic [Recovering/Resolving]

NARRATIVE: CASE EVENT DATE: 20210605
